FAERS Safety Report 6333255-7 (Version None)
Quarter: 2009Q3

REPORT INFORMATION
  Report Type: 
  Country: None (occurrence: None)
  Receive Date: 20090828
  Receipt Date: 20090818
  Transmission Date: 20100115
  Serious: Yes (Other)
  Sender: FDA-Public Use
  Company Number: JP-PFIZER INC-2009240232

PATIENT
  Age: 65 Year

DRUGS (11)
  1. CHAMPIX [Suspect]
     Indication: SMOKING CESSATION THERAPY
     Dosage: UNK
     Route: 048
     Dates: start: 20090709
  2. PROSTAL [Concomitant]
     Indication: PROSTATE CANCER
  3. ASPIRIN [Concomitant]
     Indication: PROSTATE CANCER
  4. LENDORMIN [Concomitant]
     Indication: DEPRESSION
  5. DEPAS [Concomitant]
     Indication: DEPRESSION
  6. MAG-LAX [Concomitant]
     Indication: DEPRESSION
  7. LUVOX [Concomitant]
     Indication: DEPRESSION
  8. VEGETAMIN A [Concomitant]
     Indication: DEPRESSION
  9. TRYPTANOL [Concomitant]
     Indication: DEPRESSION
  10. DESYREL [Concomitant]
     Indication: DEPRESSION
  11. ROHYPNOL [Concomitant]
     Indication: DEPRESSION

REACTIONS (1)
  - SCHIZOPHRENIFORM DISORDER [None]
